FAERS Safety Report 14563128 (Version 13)
Quarter: 2018Q4

REPORT INFORMATION
  Report Type: Spontaneous
  Country: CA (occurrence: CA)
  Receive Date: 20180222
  Receipt Date: 20181224
  Transmission Date: 20190204
  Serious: Yes (Hospitalization, Other)
  Sender: FDA-Public Use
  Company Number: CA-CELLTRION INC.-2017CA011985

PATIENT

DRUGS (20)
  1. METHOTREXATE. [Concomitant]
     Active Substance: METHOTREXATE
     Dosage: 15 MG, WEEKLY;
     Dates: start: 20170717
  2. VITAMIN B12 [Concomitant]
     Active Substance: CYANOCOBALAMIN
     Dosage: 2000 MG, DAILY
     Dates: start: 2013
  3. GLUCOSAMINE + CHONDROITIN          /01430901/ [Concomitant]
     Dosage: 1 DF, UNK
     Dates: start: 201704
  4. INFLECTRA [Suspect]
     Active Substance: INFLIXIMAB-DYYB
     Dosage: 1000 MG THEN EVERY 6 WEEKS
     Route: 042
     Dates: start: 20180105
  5. INFLECTRA [Suspect]
     Active Substance: INFLIXIMAB-DYYB
     Dosage: 1000 MG CYCLIC EVERY 6 WEEKS
     Route: 042
     Dates: start: 20180215
  6. INFLECTRA [Suspect]
     Active Substance: INFLIXIMAB-DYYB
     Dosage: 1000 MG  THEN EVERY 6 WEEKS
     Route: 042
     Dates: start: 20180627
  7. INFLECTRA [Suspect]
     Active Substance: INFLIXIMAB-DYYB
     Dosage: 1000 MG CYCLIC THEN EVERY 6 WEEKS
     Route: 042
     Dates: start: 20180510
  8. INFLECTRA [Suspect]
     Active Substance: INFLIXIMAB-DYYB
     Dosage: 1000 MG CYCLIC THEN EVERY 6 WEEKS
     Route: 042
     Dates: start: 20180920
  9. INFLECTRA [Suspect]
     Active Substance: INFLIXIMAB-DYYB
     Indication: CROHN^S DISEASE
     Dosage: 790 MG, (Q 0,2,6 WEEKS, THEN EVERY 8 WEEKS
     Route: 042
     Dates: start: 20170816, end: 20171124
  10. FOLIC ACID. [Concomitant]
     Active Substance: FOLIC ACID
     Dosage: 5 MG, DAILY
     Dates: start: 20170717
  11. PREDNISONE. [Concomitant]
     Active Substance: PREDNISONE
     Dosage: 60 MG, DAILY
     Dates: start: 201703
  12. INFLECTRA [Suspect]
     Active Substance: INFLIXIMAB-DYYB
     Dosage: 1000 MG CYCLIC THEN EVERY 6 WEEKS
     Route: 042
     Dates: start: 20180510
  13. VITAMIN D                          /00107901/ [Concomitant]
     Active Substance: ERGOCALCIFEROL
     Dosage: 4000 IU, DAILY
     Dates: start: 2016
  14. DESLORATADINE. [Concomitant]
     Active Substance: DESLORATADINE
     Dosage: 5 MG, UNK
     Dates: start: 2007
  15. INFLECTRA [Suspect]
     Active Substance: INFLIXIMAB-DYYB
     Dosage: 1000 MG THEN EVERY 6 WEEKS
     Route: 042
     Dates: start: 20180215
  16. PREVACID [Concomitant]
     Active Substance: LANSOPRAZOLE
     Dosage: 30 MG, EVERY OTHER DAY
     Dates: start: 2013
  17. INFLECTRA [Suspect]
     Active Substance: INFLIXIMAB-DYYB
     Dosage: 1000 MG/THEN EVERY 6 WEEKS
     Route: 042
     Dates: start: 20180329
  18. BUPROPION. [Concomitant]
     Active Substance: BUPROPION
     Dosage: 300 MG, DAILY
     Dates: start: 201704
  19. INFLECTRA [Suspect]
     Active Substance: INFLIXIMAB-DYYB
     Dosage: 1000 MG CYCLIC /THEN EVERY 6 WEEKS
     Route: 042
     Dates: start: 20180510
  20. INFLECTRA [Suspect]
     Active Substance: INFLIXIMAB-DYYB
     Dosage: 1000 MG CYCLIC THEN EVERY 6 WEEKS
     Route: 042
     Dates: start: 20181108

REACTIONS (11)
  - Tooth abscess [Recovered/Resolved]
  - Decreased appetite [Unknown]
  - Drug level below therapeutic [Not Recovered/Not Resolved]
  - Impaired healing [Unknown]
  - Weight decreased [Unknown]
  - White blood cell count increased [Unknown]
  - Condition aggravated [Unknown]
  - Adrenal insufficiency [Unknown]
  - Oral herpes [Not Recovered/Not Resolved]
  - Product use issue [Unknown]
  - Nausea [Recovered/Resolved]

NARRATIVE: CASE EVENT DATE: 2017
